FAERS Safety Report 9956819 (Version 1)
Quarter: 2014Q1

REPORT INFORMATION
  Report Type: Report from Study
  Country: US (occurrence: US)
  Receive Date: 20140304
  Receipt Date: 20140304
  Transmission Date: 20141002
  Serious: No
  Sender: FDA-Public Use
  Company Number: US-ABBVIE-13P-163-1096289-00

PATIENT
  Age: 59 Year
  Sex: Male

DRUGS (12)
  1. HUMIRA [Suspect]
     Indication: CROHN^S DISEASE
     Dates: start: 201210
  2. PRINIVIL [Concomitant]
     Indication: BLOOD PRESSURE
     Dosage: 40MG DAILY
  3. NORVASC [Concomitant]
     Indication: BLOOD PRESSURE
     Dosage: 40MG DAILY
  4. IRON [Concomitant]
     Indication: PRODUCT USED FOR UNKNOWN INDICATION
     Dosage: 325MG DAILY
  5. BENTYL [Concomitant]
     Indication: ABDOMINAL PAIN UPPER
  6. AMLODIPINE BESYLATE [Concomitant]
     Indication: BLOOD PRESSURE
  7. PANTOPRAZOLE [Concomitant]
     Indication: ABDOMINAL DISCOMFORT
  8. HYDROCHLOROTHIAZIDE [Concomitant]
     Indication: BLOOD PRESSURE
     Dosage: 12.5MG DAILY
  9. HYDROCHLOROTHIAZIDE [Concomitant]
     Indication: DIURETIC THERAPY
  10. LOMOTIL [Concomitant]
     Indication: DIARRHOEA
  11. VICODIN [Concomitant]
     Indication: ABDOMINAL PAIN
     Dosage: 1-2 DAILY
  12. VICODIN [Concomitant]
     Indication: BACK PAIN

REACTIONS (1)
  - Abdominal pain [Not Recovered/Not Resolved]
